FAERS Safety Report 15655684 (Version 2)
Quarter: 2018Q4

REPORT INFORMATION
  Report Type: Report from Study
  Country: None (occurrence: US)
  Receive Date: 20181126
  Receipt Date: 20181226
  Transmission Date: 20190205
  Serious: Yes (Other)
  Sender: FDA-Public Use
  Company Number: US-INSMED, INC.-US-INS-18-00232

PATIENT
  Age: 71 Year
  Sex: Female

DRUGS (2)
  1. ARIKAYCE [Suspect]
     Active Substance: AMIKACIN
     Indication: PRODUCT USED FOR UNKNOWN INDICATION
     Route: 065
  2. LAMIRA NEBULIZER SYSTEM (DEVICE) [Suspect]
     Active Substance: DEVICE

REACTIONS (7)
  - Dysphagia [Unknown]
  - Dyspnoea [Unknown]
  - Cough [Unknown]
  - Dysphonia [Unknown]
  - Hypersensitivity [Unknown]
  - Tinnitus [Unknown]
  - Oropharyngeal pain [Unknown]
